FAERS Safety Report 9428328 (Version 1)
Quarter: 2013Q3

REPORT INFORMATION
  Report Type: Spontaneous
  Country: US (occurrence: US)
  Receive Date: 20130730
  Receipt Date: 20130730
  Transmission Date: 20140515
  Serious: Yes (Hospitalization)
  Sender: FDA-Public Use
  Company Number: US-BAYER-2013-089499

PATIENT
  Sex: Female

DRUGS (6)
  1. BAYER GENUINE ASPIRIN ORIGINAL STRENGTH [Suspect]
  2. LIPITOR [Concomitant]
  3. PERCOCET [Concomitant]
  4. MIRALAX [Concomitant]
  5. TOPAMAX [Concomitant]
  6. VITAMIN D3 [Concomitant]

REACTIONS (10)
  - Intestinal obstruction [None]
  - Constipation [None]
  - Small intestinal obstruction [None]
  - Vomiting [None]
  - Abdominal pain upper [None]
  - Constipation [None]
  - White blood cell count abnormal [None]
  - Haemoglobin abnormal [None]
  - Haematocrit abnormal [None]
  - Unevaluable event [None]
